FAERS Safety Report 4334811-8 (Version None)
Quarter: 2004Q2

REPORT INFORMATION
  Report Type: 
  Country: None (occurrence: None)
  Receive Date: 20040407
  Receipt Date: 20040407
  Transmission Date: 20050107
  Serious: No
  Sender: FDA-Public Use
  Company Number: None

PATIENT
  Age: 46 Year
  Sex: Female
  Weight: 54.4316 kg

DRUGS (2)
  1. PROPRANOLOL [Suspect]
     Indication: HYPERTENSION
     Dosage: 5 MG PO TID (MONTHS)
     Route: 048
  2. PROPRANOLOL [Suspect]
     Indication: PALPITATIONS
     Dosage: 5 MG PO TID (MONTHS)
     Route: 048

REACTIONS (2)
  - DIZZINESS [None]
  - PHARMACEUTICAL PRODUCT COMPLAINT [None]
